FAERS Safety Report 21360570 (Version 1)
Quarter: 2022Q3

REPORT INFORMATION
  Report Type: Spontaneous
  Country: US (occurrence: US)
  Receive Date: 20220921
  Receipt Date: 20220921
  Transmission Date: 20221026
  Serious: No
  Sender: FDA-Public Use
  Company Number: US-ELI_LILLY_AND_COMPANY-US202209003128

PATIENT
  Age: 69 Year
  Sex: Female

DRUGS (2)
  1. MOUNJARO [Suspect]
     Active Substance: TIRZEPATIDE
     Indication: Type 2 diabetes mellitus
     Dosage: 2.5 MG, UNKNOWN
     Route: 058
  2. PANTOPRAZOLE [Concomitant]
     Active Substance: PANTOPRAZOLE
     Indication: Reflux gastritis
     Dosage: UNK UNK, UNKNOWN
     Route: 065

REACTIONS (3)
  - Anxiety [Unknown]
  - Insomnia [Unknown]
  - Nausea [Unknown]
